FAERS Safety Report 16774781 (Version 1)
Quarter: 2019Q3

REPORT INFORMATION
  Report Type: Report from Study
  Country: DE (occurrence: DE)
  Receive Date: 20190905
  Receipt Date: 20190905
  Transmission Date: 20191005
  Serious: Yes (Death, Hospitalization)
  Sender: FDA-Public Use
  Company Number: DE-TEVA-2019-DE-1101692

PATIENT
  Age: 63 Year
  Sex: Male
  Weight: 66 kg

DRUGS (7)
  1. ERBITUX [Suspect]
     Active Substance: CETUXIMAB
     Indication: SQUAMOUS CELL CARCINOMA OF HEAD AND NECK
     Dosage: 400 MG/M2
     Route: 042
     Dates: start: 20140114, end: 20140114
  2. ERBITUX [Suspect]
     Active Substance: CETUXIMAB
     Dosage: DAILY DOSE: 250 MG/M2 MILLIGRAM(S)/SQ. METER EVERY WEEKS
     Route: 042
     Dates: start: 20140218, end: 20140218
  3. KEVATRIL [Concomitant]
     Active Substance: GRANISETRON HYDROCHLORIDE
     Indication: PREMEDICATION
     Dates: start: 20140114, end: 20140114
  4. 5-FU [Suspect]
     Active Substance: FLUOROURACIL
     Indication: SQUAMOUS CELL CARCINOMA OF HEAD AND NECK
     Dosage: DAILY DOSE: 4000 MG/M2 MILLIGRAM(S)/SQ. METER EVERY 3 WEEKS
     Route: 042
     Dates: start: 20140114, end: 20140212
  5. CISPLATIN. [Suspect]
     Active Substance: CISPLATIN
     Indication: SQUAMOUS CELL CARCINOMA OF HEAD AND NECK
     Dosage: DAILY DOSE: 100 MG/M2 MILLIGRAM(S)/SQ. METER EVERY 3 WEEKS
     Route: 042
     Dates: start: 20140114, end: 20140212
  6. ERBITUX [Suspect]
     Active Substance: CETUXIMAB
     Route: 042
     Dates: start: 20140121, end: 20140218
  7. EMEND [Concomitant]
     Active Substance: APREPITANT
     Indication: PREMEDICATION
     Dates: start: 20140114, end: 20140114

REACTIONS (9)
  - Large intestine perforation [Fatal]
  - Multiple organ dysfunction syndrome [Unknown]
  - Hypomagnesaemia [Recovered/Resolved]
  - Peritonitis [Fatal]
  - Respiratory failure [Fatal]
  - Septic shock [Unknown]
  - Megacolon [Unknown]
  - Suture related complication [Unknown]
  - Hypoalbuminaemia [Recovered/Resolved]

NARRATIVE: CASE EVENT DATE: 20140204
